FAERS Safety Report 6771203-6 (Version None)
Quarter: 2010Q2

REPORT INFORMATION
  Report Type: 
  Country: None (occurrence: None)
  Receive Date: 20100616
  Receipt Date: 20100607
  Transmission Date: 20101027
  Serious: Yes (Other)
  Sender: FDA-Public Use
  Company Number: JP-JNJFOC-20100602291

PATIENT
  Age: 88 Year
  Sex: Male

DRUGS (6)
  1. DUROTEP MT [Suspect]
     Indication: CANCER PAIN
     Route: 062
  2. ROHYPNOL [Concomitant]
     Route: 048
  3. URINORM [Concomitant]
     Route: 048
  4. TAKEPRON [Concomitant]
     Route: 048
  5. KREMEZIN [Concomitant]
     Route: 048
  6. LOPERAMIDE HYDROCHLORIDE [Concomitant]
     Route: 048

REACTIONS (5)
  - ALTERED STATE OF CONSCIOUSNESS [None]
  - FEELING DRUNK [None]
  - IRRITABILITY [None]
  - PARAESTHESIA [None]
  - RESTLESSNESS [None]
